FAERS Safety Report 4720795-7 (Version None)
Quarter: 2005Q3

REPORT INFORMATION
  Report Type: 
  Country: None (occurrence: None)
  Receive Date: 20050715
  Receipt Date: 20050707
  Transmission Date: 20060218
  Serious: Yes (Congenital Anomaly, Other)
  Sender: FDA-Public Use
  Company Number: 1658

PATIENT
  Sex: Female
  Weight: 1.8144 kg

DRUGS (1)
  1. AMNESTEEM [Suspect]

REACTIONS (2)
  - DANDY-WALKER SYNDROME [None]
  - DRUG EXPOSURE DURING PREGNANCY [None]
